FAERS Safety Report 21408501 (Version 1)
Quarter: 2022Q4

REPORT INFORMATION
  Report Type: Spontaneous
  Country: US (occurrence: US)
  Receive Date: 20221004
  Receipt Date: 20221004
  Transmission Date: 20230113
  Serious: Yes (Hospitalization, Other)
  Sender: FDA-Public Use
  Company Number: US-SA-2022SA399709

PATIENT
  Age: 16 Year
  Sex: Male

DRUGS (2)
  1. DIPHENHYDRAMINE HYDROCHLORIDE [Suspect]
     Active Substance: DIPHENHYDRAMINE HYDROCHLORIDE
     Dosage: 2000 MG
  2. ACETAMINOPHEN [Concomitant]
     Active Substance: ACETAMINOPHEN
     Dosage: 40,000 MG

REACTIONS (11)
  - Neuromuscular toxicity [Unknown]
  - Mydriasis [Unknown]
  - Tachycardia [Unknown]
  - Flushing [Unknown]
  - Agitation [Unknown]
  - Disorientation [Unknown]
  - Hyperreflexia [Unknown]
  - Dry skin [Unknown]
  - Hypertonia [Unknown]
  - Overdose [Unknown]
  - Clonus [Unknown]
